FAERS Safety Report 13640152 (Version 3)
Quarter: 2018Q2

REPORT INFORMATION
  Report Type: Report from Study
  Country: US (occurrence: US)
  Receive Date: 20170609
  Receipt Date: 20180507
  Transmission Date: 20180711
  Serious: Yes (Hospitalization, Other)
  Sender: FDA-Public Use
  Company Number: US-JAZZ-2017-US-006687

PATIENT
  Age: 46 Year
  Sex: Male

DRUGS (32)
  1. COLACE [Concomitant]
     Active Substance: DOCUSATE SODIUM
  2. ATENOLOL. [Concomitant]
     Active Substance: ATENOLOL
  3. NASONEX [Concomitant]
     Active Substance: MOMETASONE FUROATE
  4. VYVANSE [Concomitant]
     Active Substance: LISDEXAMFETAMINE DIMESYLATE
  5. CLONAZEPAM. [Concomitant]
     Active Substance: CLONAZEPAM
  6. GEMFIBROZIL. [Concomitant]
     Active Substance: GEMFIBROZIL
  7. TACLONEX [Concomitant]
     Active Substance: BETAMETHASONE DIPROPIONATE\CALCIPOTRIENE\CALCIPOTRIENE HYDRATE
  8. GABAPENTIN. [Concomitant]
     Active Substance: GABAPENTIN
  9. PREVACID [Concomitant]
     Active Substance: LANSOPRAZOLE
  10. FISH OIL [Concomitant]
     Active Substance: FISH OIL
  11. CYMBALTA [Concomitant]
     Active Substance: DULOXETINE HYDROCHLORIDE
  12. PIROXICAM. [Concomitant]
     Active Substance: PIROXICAM
  13. DICLOFENAC [Concomitant]
     Active Substance: DICLOFENAC
  14. IRON [Concomitant]
     Active Substance: IRON
  15. XYREM [Suspect]
     Active Substance: SODIUM OXYBATE
     Dosage: 3.75 G, BID
     Route: 048
     Dates: start: 200412, end: 200502
  16. XYREM [Suspect]
     Active Substance: SODIUM OXYBATE
     Dosage: 4.5 G, BID
     Route: 048
     Dates: start: 200502
  17. BISACODYL. [Concomitant]
     Active Substance: BISACODYL
  18. METHYLPREDNISOLONE. [Concomitant]
     Active Substance: METHYLPREDNISOLONE
  19. HYDROCHLOROTHIAZIDE. [Concomitant]
     Active Substance: HYDROCHLOROTHIAZIDE
  20. LIDODERM [Concomitant]
     Active Substance: LIDOCAINE
  21. LYRICA [Concomitant]
     Active Substance: PREGABALIN
  22. ALLOPURINOL. [Concomitant]
     Active Substance: ALLOPURINOL
  23. ENBREL [Concomitant]
     Active Substance: ETANERCEPT
  24. ASPIRIN 81 [Concomitant]
     Active Substance: ASPIRIN
  25. CLOBETASOL [Concomitant]
     Active Substance: CLOBETASOL
  26. CRESTOR [Concomitant]
     Active Substance: ROSUVASTATIN CALCIUM
  27. MELATONIN [Concomitant]
     Active Substance: MELATONIN
  28. NUVIGIL [Concomitant]
     Active Substance: ARMODAFINIL
  29. RAMIPRIL. [Concomitant]
     Active Substance: RAMIPRIL
  30. VICODIN [Concomitant]
     Active Substance: ACETAMINOPHEN\HYDROCODONE BITARTRATE
  31. XYREM [Suspect]
     Active Substance: SODIUM OXYBATE
     Indication: NARCOLEPSY
     Dosage: 3 G, BID
     Route: 048
     Dates: start: 200410, end: 200412
  32. PROCTOSOL [Concomitant]

REACTIONS (13)
  - Amnesia [Unknown]
  - Dehydration [Unknown]
  - Retinal detachment [Unknown]
  - Visual impairment [Not Recovered/Not Resolved]
  - Hypotension [Unknown]
  - Haemorrhoids [Not Recovered/Not Resolved]
  - Constipation [Not Recovered/Not Resolved]
  - Diarrhoea [Unknown]
  - Blood potassium decreased [Unknown]
  - Blood creatinine increased [Unknown]
  - Loss of consciousness [Unknown]
  - Lumbar spinal stenosis [Not Recovered/Not Resolved]
  - Tremor [Not Recovered/Not Resolved]

NARRATIVE: CASE EVENT DATE: 200602
